FAERS Safety Report 23113025 (Version 2)
Quarter: 2023Q4

REPORT INFORMATION
  Report Type: Spontaneous
  Country: US (occurrence: None)
  Receive Date: 20231027
  Receipt Date: 20231229
  Transmission Date: 20240109
  Serious: No
  Sender: FDA-Public Use
  Company Number: 2023A242477

PATIENT
  Sex: Female

DRUGS (1)
  1. SYMBICORT [Suspect]
     Active Substance: BUDESONIDE\FORMOTEROL FUMARATE DIHYDRATE
     Indication: Asthma
     Dosage: DOSE UNKNOWN; AS REQUIRED AS REQUIRED
     Route: 055

REACTIONS (4)
  - Sneezing [Unknown]
  - Wrong technique in device usage process [Unknown]
  - Off label use [Unknown]
  - Device use issue [Unknown]
